FAERS Safety Report 13398977 (Version 1)
Quarter: 2017Q2

REPORT INFORMATION
  Report Type: Report from Study
  Country: US (occurrence: US)
  Receive Date: 20170404
  Receipt Date: 20170404
  Transmission Date: 20170830
  Serious: Yes (Hospitalization, Other)
  Sender: FDA-Public Use
  Company Number: US-BEH-2017079304

PATIENT
  Age: 71 Year
  Sex: Male
  Weight: 123.36 kg

DRUGS (1)
  1. ZEMAIRA [Suspect]
     Active Substance: .ALPHA.1-PROTEINASE INHIBITOR HUMAN
     Indication: ALPHA-1 ANTI-TRYPSIN DEFICIENCY
     Dosage: UNK, QMT
     Route: 042

REACTIONS (4)
  - Dehydration [Unknown]
  - Blood potassium decreased [Unknown]
  - Malaise [Unknown]
  - Fatigue [Unknown]
